FAERS Safety Report 16776089 (Version 1)
Quarter: 2019Q3

REPORT INFORMATION
  Report Type: Spontaneous
  Country: CN (occurrence: CN)
  Receive Date: 20190905
  Receipt Date: 20190905
  Transmission Date: 20191005
  Serious: Yes (Hospitalization)
  Sender: FDA-Public Use
  Company Number: CN-PFIZER INC-2019380375

PATIENT
  Age: 38 Year
  Sex: Female
  Weight: 45 kg

DRUGS (3)
  1. DAN KE [Concomitant]
     Indication: PSYCHIATRIC SYMPTOM
     Dosage: 1 MG, 1X/DAY
     Route: 048
     Dates: start: 20190814, end: 20190822
  2. LAMOTRIGINE. [Concomitant]
     Active Substance: LAMOTRIGINE
     Indication: EPILEPSY
     Dosage: 37.5 MG, 2X/DAY
     Route: 048
     Dates: start: 20190814, end: 20190820
  3. SOLU-MEDROL [Suspect]
     Active Substance: METHYLPREDNISOLONE SODIUM SUCCINATE
     Indication: ANTIINFLAMMATORY THERAPY
     Dosage: 1 G, 1X/DAY
     Route: 041
     Dates: start: 20190817, end: 20190821

REACTIONS (1)
  - Activated partial thromboplastin time shortened [Unknown]

NARRATIVE: CASE EVENT DATE: 20190820
